FAERS Safety Report 20879297 (Version 1)
Quarter: 2022Q2

REPORT INFORMATION
  Report Type: Spontaneous
  Country: US (occurrence: US)
  Receive Date: 20220526
  Receipt Date: 20220526
  Transmission Date: 20220721
  Serious: No
  Sender: FDA-Public Use
  Company Number: US-BRISTOL-MYERS SQUIBB COMPANY-2022-043854

PATIENT
  Age: 81 Year
  Sex: Female
  Weight: 63.5 kg

DRUGS (2)
  1. REVLIMID [Suspect]
     Active Substance: LENALIDOMIDE
     Indication: Follicular lymphoma stage II
     Dosage: DAILY 21 DAYS ON 7 DAYS OFF
     Route: 048
     Dates: start: 20220228
  2. REVLIMID [Suspect]
     Active Substance: LENALIDOMIDE

REACTIONS (3)
  - Rash [Recovered/Resolved]
  - Pruritus [Recovering/Resolving]
  - Erythema [Unknown]

NARRATIVE: CASE EVENT DATE: 20220301
